FAERS Safety Report 22342262 (Version 1)
Quarter: 2023Q2

REPORT INFORMATION
  Report Type: Spontaneous
  Country: GB (occurrence: GB)
  Receive Date: 20230519
  Receipt Date: 20230519
  Transmission Date: 20230722
  Serious: Yes (Other)
  Sender: FDA-Public Use
  Company Number: GB-BAYER-2023A066897

PATIENT
  Sex: Male

DRUGS (1)
  1. NEXAVAR [Suspect]
     Active Substance: SORAFENIB
     Indication: Desmoid tumour
     Dosage: UNK

REACTIONS (2)
  - Desmoid tumour [Not Recovered/Not Resolved]
  - Off label use [None]
